FAERS Safety Report 18431128 (Version 1)
Quarter: 2020Q4

REPORT INFORMATION
  Report Type: Spontaneous
  Country: US (occurrence: US)
  Receive Date: 20201027
  Receipt Date: 20201027
  Transmission Date: 20210114
  Serious: No
  Sender: FDA-Public Use
  Company Number: None

PATIENT
  Age: 55 Year
  Sex: Female

DRUGS (1)
  1. VUMERITY [Suspect]
     Active Substance: DIROXIMEL FUMARATE
     Indication: MULTIPLE SCLEROSIS
     Route: 048
     Dates: start: 20200730

REACTIONS (5)
  - Flushing [None]
  - Abdominal pain [None]
  - Diarrhoea [None]
  - Dizziness [None]
  - Fall [None]

NARRATIVE: CASE EVENT DATE: 202008
